FAERS Safety Report 22258806 (Version 3)
Quarter: 2023Q2

REPORT INFORMATION
  Report Type: Spontaneous
  Country: JP (occurrence: JP)
  Receive Date: 20230427
  Receipt Date: 20230523
  Transmission Date: 20230722
  Serious: No
  Sender: FDA-Public Use
  Company Number: JP-PFIZER INC-202300159948

PATIENT
  Age: 81 Year
  Sex: Male

DRUGS (3)
  1. ENBREL [Suspect]
     Active Substance: ETANERCEPT
     Indication: Rheumatoid arthritis
     Dosage: 0.5 ML WEEKLY
     Route: 058
  2. METHOTREXATE SODIUM [Concomitant]
     Active Substance: METHOTREXATE SODIUM
     Indication: Rheumatoid arthritis
     Dosage: 2 MG, 2X/WEEK
     Route: 048
  3. URSO [Concomitant]
     Active Substance: URSODIOL
     Indication: Liver disorder
     Dosage: 200 MG, 2X/DAY
     Route: 048

REACTIONS (3)
  - Needle issue [Unknown]
  - Poor quality device used [Unknown]
  - Device difficult to use [Unknown]

NARRATIVE: CASE EVENT DATE: 20230331
